FAERS Safety Report 7904707-0 (Version None)
Quarter: 2011Q4

REPORT INFORMATION
  Report Type: 
  Country: None (occurrence: None)
  Receive Date: 20111109
  Receipt Date: 20111101
  Transmission Date: 20120403
  Serious: Yes (Hospitalization)
  Sender: FDA-Public Use
  Company Number: US-GLAXOSMITHKLINE-B0761144A

PATIENT
  Age: 13 Year
  Sex: Female

DRUGS (2)
  1. BUPROPION HCL [Suspect]
     Route: 048
  2. BACLOFEN [Suspect]

REACTIONS (11)
  - ELECTROENCEPHALOGRAM ABNORMAL [None]
  - GRAND MAL CONVULSION [None]
  - OVERDOSE [None]
  - COMA [None]
  - SUICIDAL IDEATION [None]
  - DEPRESSION [None]
  - RESPIRATORY ARREST [None]
  - HYPOTHERMIA [None]
  - COGNITIVE DISORDER [None]
  - BRADYCARDIA [None]
  - DECEREBRATION [None]
